FAERS Safety Report 10465554 (Version 1)
Quarter: 2014Q3

REPORT INFORMATION
  Report Type: Spontaneous
  Country: IT (occurrence: IT)
  Receive Date: 20140920
  Receipt Date: 20140920
  Transmission Date: 20150326
  Serious: Yes (Other)
  Sender: FDA-Public Use
  Company Number: IT-ACCORD-025949

PATIENT
  Age: 24 Year
  Sex: Male

DRUGS (3)
  1. TACROLIMUS. [Suspect]
     Active Substance: TACROLIMUS
     Indication: ORGAN TRANSPLANT
     Dosage: DAILY THROUGH LEVEL 10 NG/ML
     Dates: end: 201211
  2. ALEMTUZUMAB [Concomitant]
     Active Substance: ALEMTUZUMAB
     Indication: ORGAN TRANSPLANT
  3. PREDNISONE. [Concomitant]
     Active Substance: PREDNISONE
     Indication: ORGAN TRANSPLANT

REACTIONS (3)
  - Leukopenia [Recovering/Resolving]
  - Autoimmune haemolytic anaemia [Recovering/Resolving]
  - Thrombocytopenia [Recovering/Resolving]
